FAERS Safety Report 5021495-9 (Version None)
Quarter: 2006Q2

REPORT INFORMATION
  Report Type: 
  Country: None (occurrence: None)
  Receive Date: 20060605
  Receipt Date: 20060523
  Transmission Date: 20061013
  Serious: Yes (Hospitalization)
  Sender: FDA-Public Use
  Company Number: 225465

PATIENT
  Age: 57 Year
  Sex: Male
  Weight: 65 kg

DRUGS (16)
  1. AVASTIN [Suspect]
     Indication: OESOPHAGEAL CARCINOMA
     Dosage: 5 MG/KG, DAYS 1 + 15, INTRAVENOUS
     Route: 042
     Dates: start: 20060124, end: 20060502
  2. DOCETAXEL                (DOCETAXEL) [Suspect]
     Indication: OESOPHAGEAL CARCINOMA
     Dosage: 35 MG/M2, DAYS 1,8,15, INTRAVENOUS
     Route: 042
     Dates: start: 20060124, end: 20060502
  3. ATIVAN [Concomitant]
  4. COMPAZINE [Concomitant]
  5. DECADRON SRC [Concomitant]
  6. LOMOTIL [Concomitant]
  7. MEGACE [Concomitant]
  8. METROGEL [Concomitant]
  9. OXYCODONE (OXYCODONE) [Concomitant]
  10. PRILOSEC [Concomitant]
  11. REGLAN [Concomitant]
  12. REMERON [Concomitant]
  13. TOPROL-XL [Concomitant]
  14. LISINOPRIL [Concomitant]
  15. HYDROXYZINE [Concomitant]
  16. DIFLUCAN [Concomitant]

REACTIONS (6)
  - BLOOD PRESSURE SYSTOLIC INCREASED [None]
  - DISEASE PROGRESSION [None]
  - HYPOVOLAEMIA [None]
  - METABOLIC ACIDOSIS [None]
  - METASTASES TO SMALL INTESTINE [None]
  - SMALL INTESTINAL OBSTRUCTION [None]
